FAERS Safety Report 15379264 (Version 1)
Quarter: 2018Q3

REPORT INFORMATION
  Report Type: Spontaneous
  Country: DE (occurrence: DE)
  Receive Date: 20180913
  Receipt Date: 20180913
  Transmission Date: 20181010
  Serious: Yes (Other)
  Sender: FDA-Public Use
  Company Number: DE-ELI_LILLY_AND_COMPANY-DE201809000736

PATIENT
  Age: 62 Year
  Sex: Male

DRUGS (3)
  1. CIALIS [Suspect]
     Active Substance: TADALAFIL
     Indication: BENIGN PROSTATIC HYPERPLASIA
     Dosage: 5 MG, DAILY
     Route: 048
     Dates: start: 201709
  2. CIALIS [Suspect]
     Active Substance: TADALAFIL
     Dosage: 5 MG, EACH MORNING
     Route: 048
  3. CIALIS [Suspect]
     Active Substance: TADALAFIL
     Dosage: 5 MG, EACH EVENING
     Route: 048

REACTIONS (4)
  - Prescribed overdose [Unknown]
  - Syringomyelia [Unknown]
  - Benign prostatic hyperplasia [Unknown]
  - Dysuria [Unknown]
